FAERS Safety Report 26012604 (Version 1)
Quarter: 2025Q4

REPORT INFORMATION
  Report Type: Spontaneous
  Country: CN (occurrence: CN)
  Receive Date: 20251107
  Receipt Date: 20251107
  Transmission Date: 20260117
  Serious: Yes (Hospitalization)
  Sender: VIIV
  Company Number: CN-VIIV HEALTHCARE-CN2025CHI142201

PATIENT
  Age: 46 Year
  Sex: Male
  Weight: 58 kg

DRUGS (1)
  1. DOVATO [Suspect]
     Active Substance: DOLUTEGRAVIR SODIUM\LAMIVUDINE
     Indication: Acquired immunodeficiency syndrome
     Dosage: 1 DF, QD

REACTIONS (3)
  - Hyperlipidaemia [Recovering/Resolving]
  - Asthenia [Recovering/Resolving]
  - Hepatic enzyme abnormal [Recovering/Resolving]

NARRATIVE: CASE EVENT DATE: 20251027
